FAERS Safety Report 4600757-0 (Version None)
Quarter: 2005Q1

REPORT INFORMATION
  Report Type: 
  Country: None (occurrence: None)
  Receive Date: 20050304
  Receipt Date: 20050220
  Transmission Date: 20050727
  Serious: Yes (Other)
  Sender: FDA-Public Use
  Company Number: CHNY2005DE00498

PATIENT
  Age: 81 Year
  Sex: Female

DRUGS (4)
  1. TAVEGIL (NCH) (CLEMASTINE HYDROGEN FUMARATE)TABLET [Suspect]
     Indication: PRURITUS
     Dosage: 2 TABS IN THE EVENING, ORAL
     Route: 048
     Dates: start: 20050201, end: 20050219
  2. SOLIAN (AMISULPRIDE) [Suspect]
  3. LASIX [Concomitant]
  4. XUSAL (LEVOCETIRIZINE DIHYDROCHLORIDE) [Suspect]

REACTIONS (1)
  - ELECTROCARDIOGRAM QT PROLONGED [None]
